FAERS Safety Report 12852080 (Version 1)
Quarter: 2016Q4

REPORT INFORMATION
  Report Type: Spontaneous
  Country: US (occurrence: US)
  Receive Date: 20161014
  Receipt Date: 20161014
  Transmission Date: 20170207
  Serious: No
  Sender: FDA-Public Use
  Company Number: None

PATIENT
  Age: 52 Year
  Sex: Female
  Weight: 57.15 kg

DRUGS (4)
  1. VITAMIN D3 [Concomitant]
     Active Substance: CHOLECALCIFEROL
  2. XIIDRA [Suspect]
     Active Substance: LIFITEGRAST
     Indication: DRY EYE
     Dosage: Q12H OPHTHALMIC 60 SINGLE-USE
     Route: 047
     Dates: start: 20160927, end: 20161003
  3. BIOTIN [Concomitant]
     Active Substance: BIOTIN
  4. MULTI VITAMIN [Concomitant]
     Active Substance: VITAMINS

REACTIONS (4)
  - Abnormal sensation in eye [None]
  - Sinusitis [None]
  - Anxiety [None]
  - Eye disorder [None]

NARRATIVE: CASE EVENT DATE: 20161003
